FAERS Safety Report 10070561 (Version 1)
Quarter: 2014Q2

REPORT INFORMATION
  Report Type: Spontaneous
  Country: FR (occurrence: FR)
  Receive Date: 20140410
  Receipt Date: 20140410
  Transmission Date: 20141212
  Serious: Yes (Hospitalization, Other)
  Sender: FDA-Public Use
  Company Number: FR-PFIZER INC-2014097539

PATIENT
  Age: 32 Year
  Sex: Male

DRUGS (3)
  1. XANAX [Suspect]
     Dosage: 0.50 MG, UNK
     Route: 048
     Dates: start: 20130418, end: 20130418
  2. METHADONE AP-HP [Suspect]
     Dosage: 3 TABLETS OF 20 MG, SINGLE
     Route: 048
     Dates: start: 20130418, end: 20130418
  3. SEROPLEX [Suspect]
     Dosage: 11 DF, SINGLE
     Route: 048
     Dates: start: 20130418, end: 20130418

REACTIONS (6)
  - Intentional overdose [Unknown]
  - Coma [Recovered/Resolved]
  - Pneumonia aspiration [Unknown]
  - Respiratory failure [Unknown]
  - Hypertension [Unknown]
  - Heart rate increased [Unknown]
